FAERS Safety Report 15979508 (Version 3)
Quarter: 2019Q2

REPORT INFORMATION
  Report Type: Spontaneous
  Country: US (occurrence: US)
  Receive Date: 20190219
  Receipt Date: 20190430
  Transmission Date: 20190711
  Serious: No
  Sender: FDA-Public Use
  Company Number: US-PFIZER INC-2019063226

PATIENT
  Age: 47 Year
  Sex: Female

DRUGS (2)
  1. CYTOMEL [Suspect]
     Active Substance: LIOTHYRONINE SODIUM
     Indication: PERICARDITIS
     Dosage: 25 UG, DAILY [1 TABLET ON AN EMPTY STOMACH]
     Route: 048
     Dates: start: 20171212, end: 20180122
  2. CYTOMEL [Suspect]
     Active Substance: LIOTHYRONINE SODIUM
     Indication: HYPOTHYROIDISM
     Dosage: 5 UG, 1X/DAY [1 TABLET ON AN EMPTY STOMACH, ONCE A DAY]
     Route: 048

REACTIONS (7)
  - Pollakiuria [Unknown]
  - White blood cell count increased [Unknown]
  - Thyroid function test abnormal [Unknown]
  - Neutrophil count increased [Unknown]
  - Chest pain [Recovered/Resolved]
  - Drug hypersensitivity [Not Recovered/Not Resolved]
  - Hypertension [Unknown]

NARRATIVE: CASE EVENT DATE: 20180117
